FAERS Safety Report 17396145 (Version 1)
Quarter: 2020Q1

REPORT INFORMATION
  Report Type: Spontaneous
  Country: US (occurrence: US)
  Receive Date: 20200124
  Receipt Date: 20200124
  Transmission Date: 20200409
  Serious: Yes (Hospitalization)
  Sender: FDA-Public Use
  Company Number: None

PATIENT
  Age: 38 Year
  Sex: Male
  Weight: 117.9 kg

DRUGS (3)
  1. METHOTREXATE. [Suspect]
     Active Substance: METHOTREXATE
     Dates: end: 20181217
  2. CYCLOPHOSPHAMIDE. [Suspect]
     Active Substance: CYCLOPHOSPHAMIDE
     Dates: end: 20181126
  3. CYTARABINE. [Suspect]
     Active Substance: CYTARABINE
     Dates: end: 20181206

REACTIONS (8)
  - Pyrexia [None]
  - Staphylococcus test positive [None]
  - Febrile neutropenia [None]
  - Erythema [None]
  - Catheter site erythema [None]
  - Device related infection [None]
  - Skin swelling [None]
  - Chills [None]

NARRATIVE: CASE EVENT DATE: 20181217
